FAERS Safety Report 25472505 (Version 1)
Quarter: 2025Q2

REPORT INFORMATION
  Report Type: Other
  Country: NL (occurrence: NL)
  Receive Date: 20250624
  Receipt Date: 20250624
  Transmission Date: 20250716
  Serious: Yes (Other)
  Sender: STRIDES
  Company Number: None

PATIENT
  Age: 73 Year
  Sex: Female

DRUGS (4)
  1. ATORVASTATIN [Interacting]
     Active Substance: ATORVASTATIN
     Indication: Blood cholesterol increased
     Route: 065
  2. ATORVASTATIN [Interacting]
     Active Substance: ATORVASTATIN
     Indication: Hypercholesterolaemia
     Route: 065
  3. CITALOPRAM [Interacting]
     Active Substance: CITALOPRAM
     Indication: Depression
     Route: 065
  4. CITALOPRAM [Interacting]
     Active Substance: CITALOPRAM
     Route: 065

REACTIONS (4)
  - Drug interaction [Recovered/Resolved]
  - Labelled drug-drug interaction medication error [Unknown]
  - Myalgia [Recovered/Resolved]
  - Pain in extremity [Recovered/Resolved]
